FAERS Safety Report 7554325-1 (Version None)
Quarter: 2011Q2

REPORT INFORMATION
  Report Type: 
  Country: None (occurrence: None)
  Receive Date: 20110617
  Receipt Date: 20110608
  Transmission Date: 20111010
  Serious: Yes (Hospitalization)
  Sender: FDA-Public Use
  Company Number: JP-JNJFOC-20110606105

PATIENT
  Age: 15 Year
  Sex: Male

DRUGS (4)
  1. TOPIRAMATE [Suspect]
     Indication: EPILEPSY
     Route: 048
  2. DEPAKENE [Suspect]
     Indication: EPILEPSY
     Route: 048
  3. KEPPRA [Suspect]
     Indication: EPILEPSY
     Route: 048
  4. KEPPRA [Suspect]
     Route: 048

REACTIONS (1)
  - HALLUCINATION, AUDITORY [None]
